FAERS Safety Report 26109071 (Version 1)
Quarter: 2025Q4

REPORT INFORMATION
  Report Type: Spontaneous
  Country: US (occurrence: None)
  Receive Date: 20251201
  Receipt Date: 20251201
  Transmission Date: 20260119
  Serious: Yes (Disabling)
  Sender: FDA-CTU
  Company Number: None

PATIENT
  Age: 77 Year
  Sex: Female
  Weight: 78.02 kg

DRUGS (13)
  1. REPATHA [Suspect]
     Active Substance: EVOLOCUMAB
     Indication: Blood cholesterol increased
     Dosage: OTHER QUANTITY : 1 INJECT EVERY 2 WEEKS ;?FREQUENCY : EVERY OTHER WEEK;?OTHER ROUTE : INJECTION ;?
     Route: 050
     Dates: start: 20240506, end: 20251001
  2. VITAMIN B [Concomitant]
     Active Substance: VITAMIN B
  3. PROBIOTICS NOS [Concomitant]
     Active Substance: PROBIOTICS NOS
  4. Vitamins D3 + K2 [Concomitant]
  5. Magnesiu glycinate / calcium [Concomitant]
  6. VITAMIN C [Concomitant]
     Active Substance: ASCORBIC ACID
  7. COENZYME Q10 [Concomitant]
     Active Substance: DIETARY SUPPLEMENT\UBIDECARENONE
  8. VITAMIN A [Concomitant]
     Active Substance: VITAMIN A
  9. OMEGA 3 [Concomitant]
     Active Substance: CAPSAICIN
  10. VITAMIN E [Concomitant]
     Active Substance: .ALPHA.-TOCOPHEROL
  11. CREON [Concomitant]
     Active Substance: PANCRELIPASE AMYLASE\PANCRELIPASE LIPASE\PANCRELIPASE PROTEASE
  12. METOPROLOL [Concomitant]
     Active Substance: METOPROLOL
  13. Meloicam [Concomitant]

REACTIONS (5)
  - Diarrhoea [None]
  - Neck pain [None]
  - Back pain [None]
  - Pancreatic injury [None]
  - Polyp [None]

NARRATIVE: CASE EVENT DATE: 20250825
